FAERS Safety Report 7459044-8 (Version None)
Quarter: 2011Q2

REPORT INFORMATION
  Report Type: 
  Country: None (occurrence: None)
  Receive Date: 20110505
  Receipt Date: 20090331
  Transmission Date: 20111010
  Serious: No
  Sender: FDA-Public Use
  Company Number: US-BIOGENIDEC-2009BI010108

PATIENT
  Sex: Female

DRUGS (1)
  1. TYSABRI [Suspect]
     Indication: MULTIPLE SCLEROSIS
     Route: 042
     Dates: start: 20080404, end: 20101221

REACTIONS (4)
  - BLOOD PRESSURE FLUCTUATION [None]
  - MALAISE [None]
  - CARDIAC DISORDER [None]
  - FEELING ABNORMAL [None]
